FAERS Safety Report 10223352 (Version 2)
Quarter: 2014Q2

REPORT INFORMATION
  Report Type: Spontaneous
  Country: US (occurrence: US)
  Receive Date: 20140609
  Receipt Date: 20140609
  Transmission Date: 20141212
  Serious: No
  Sender: FDA-Public Use
  Company Number: US-DRREDDYS-USA/USA/13/0029897

PATIENT
  Age: 81 Year
  Sex: Male
  Weight: 136.5 kg

DRUGS (6)
  1. FEXOFENADINE HCL  OTC [Suspect]
     Indication: URTICARIA
     Route: 048
     Dates: start: 20130506
  2. FEXOFENADINE HCL  OTC [Suspect]
     Indication: RASH
  3. RANITIDINE TABLETS 150 MG OTC [Suspect]
     Indication: URTICARIA
     Route: 048
     Dates: start: 20130506
  4. RANITIDINE TABLETS 150 MG OTC [Suspect]
     Indication: RASH
  5. PREDNISONE [Concomitant]
     Indication: RASH
     Route: 065
     Dates: start: 20130506, end: 201305
  6. PREDNISONE [Concomitant]
     Indication: URTICARIA

REACTIONS (1)
  - Hyperglycaemia [Recovering/Resolving]
